FAERS Safety Report 6391195-1 (Version None)
Quarter: 2009Q4

REPORT INFORMATION
  Report Type: 
  Country: None (occurrence: None)
  Receive Date: 20091007
  Receipt Date: 20090925
  Transmission Date: 20100525
  Serious: Yes (Other)
  Sender: FDA-Public Use
  Company Number: US-JNJFOC-20090908392

PATIENT
  Age: 6 Month
  Sex: Male
  Weight: 7.71 kg

DRUGS (2)
  1. TYLENOL (CAPLET) [Suspect]
     Route: 048
     Dates: start: 20090913, end: 20090925
  2. TYLENOL (CAPLET) [Suspect]
     Indication: TEETHING
     Route: 048
     Dates: start: 20090913, end: 20090925

REACTIONS (4)
  - COUGH [None]
  - SNEEZING [None]
  - TRANSMISSION OF AN INFECTIOUS AGENT VIA A MEDICINAL PRODUCT [None]
  - WHEEZING [None]
